FAERS Safety Report 19200863 (Version 11)
Quarter: 2022Q1

REPORT INFORMATION
  Report Type: Report from Study
  Country: US (occurrence: US)
  Receive Date: 20210430
  Receipt Date: 20220120
  Transmission Date: 20220423
  Serious: Yes (Hospitalization)
  Sender: FDA-Public Use
  Company Number: US-SHIRE-US201935385

PATIENT
  Age: 52 Year
  Sex: Female

DRUGS (19)
  1. LANADELUMAB [Suspect]
     Active Substance: LANADELUMAB
     Indication: Immune system disorder
     Dosage: 300 MILLIGRAM, Q2WEEKS
     Route: 058
     Dates: start: 20180829
  2. LANADELUMAB [Suspect]
     Active Substance: LANADELUMAB
     Dosage: 300 MILLIGRAM, Q2WEEKS
     Route: 058
     Dates: start: 20180910
  3. LANADELUMAB [Suspect]
     Active Substance: LANADELUMAB
     Dosage: 300 MILLIGRAM, Q2WEEKS
     Route: 058
     Dates: start: 20180911
  4. LANADELUMAB [Suspect]
     Active Substance: LANADELUMAB
     Dosage: 300 MILLIGRAM, Q2WEEKS
     Route: 042
     Dates: start: 2018
  5. LANADELUMAB [Suspect]
     Active Substance: LANADELUMAB
     Dosage: 2 MILLILITER, Q2WEEKS
     Route: 058
     Dates: start: 20181009
  6. LANADELUMAB [Suspect]
     Active Substance: LANADELUMAB
     Dosage: 300 MILLIGRAM, Q2WEEKS
     Route: 058
     Dates: start: 201907
  7. LANADELUMAB [Suspect]
     Active Substance: LANADELUMAB
     Dosage: 300 MILLIGRAM, Q2WEEKS
     Route: 058
     Dates: start: 20200611
  8. LANADELUMAB [Suspect]
     Active Substance: LANADELUMAB
     Dosage: 30 MILLIGRAM
     Route: 058
     Dates: start: 20201029
  9. LANADELUMAB [Suspect]
     Active Substance: LANADELUMAB
     Dosage: 300 MILLIGRAM, Q2WEEKS
     Route: 058
     Dates: start: 202105
  10. LANADELUMAB [Suspect]
     Active Substance: LANADELUMAB
     Dosage: 300 MILLIGRAM, Q2WEEKS
     Route: 058
     Dates: start: 201809
  11. FIRAZYR [Suspect]
     Active Substance: ICATIBANT ACETATE
     Indication: Immune system disorder
     Dosage: 30 MILLIGRAM
     Route: 058
     Dates: start: 20111222
  12. FIRAZYR [Suspect]
     Active Substance: ICATIBANT ACETATE
     Indication: Immune system disorder
     Dosage: 30 MILLIGRAM
     Route: 058
     Dates: start: 20111222
  13. FIRAZYR [Suspect]
     Active Substance: ICATIBANT ACETATE
     Dosage: 30 MILLIGRAM
     Route: 058
     Dates: start: 20201029
  14. FIRAZYR [Suspect]
     Active Substance: ICATIBANT ACETATE
     Dosage: 30 MILLIGRAM
     Route: 058
     Dates: start: 20201029
  15. FIRAZYR [Suspect]
     Active Substance: ICATIBANT ACETATE
     Dosage: 30 MILLIGRAM, PRN
     Route: 058
     Dates: start: 2020
  16. FIRAZYR [Suspect]
     Active Substance: ICATIBANT ACETATE
     Dosage: 30 MILLIGRAM, PRN
     Route: 058
     Dates: start: 2020
  17. KALBITOR [Suspect]
     Active Substance: ECALLANTIDE
     Indication: Immune system disorder
     Dosage: 30 MILLIGRAM
     Route: 058
  18. KALBITOR [Suspect]
     Active Substance: ECALLANTIDE
     Dosage: 30 MILLIGRAM, PRN
     Route: 058
     Dates: start: 20210426
  19. COVID-19 VACCINE NOS [Suspect]
     Active Substance: COVID-19 VACCINE NOS
     Indication: Product used for unknown indication
     Route: 065

REACTIONS (4)
  - Hereditary angioedema [Recovered/Resolved]
  - Condition aggravated [Unknown]
  - Blister [Unknown]
  - Incorrect route of product administration [Unknown]

NARRATIVE: CASE EVENT DATE: 20191015
